FAERS Safety Report 12550581 (Version 2)
Quarter: 2016Q3

REPORT INFORMATION
  Report Type: Report from Study
  Country: US (occurrence: US)
  Receive Date: 20160712
  Receipt Date: 20160716
  Transmission Date: 20161109
  Serious: Yes (Hospitalization, Other)
  Sender: FDA-Public Use
  Company Number: US-009507513-1607USA003835

PATIENT
  Age: 43 Year
  Sex: Female
  Weight: 66.2 kg

DRUGS (1)
  1. PEMBROLIZUMAB. [Suspect]
     Active Substance: PEMBROLIZUMAB
     Indication: BREAST CANCER
     Dosage: 200 MG, Q3W
     Route: 042
     Dates: start: 20160224, end: 20160317

REACTIONS (2)
  - Oesophageal perforation [Unknown]
  - Gastrostomy [Unknown]

NARRATIVE: CASE EVENT DATE: 20160409
